FAERS Safety Report 5030595-9 (Version None)
Quarter: 2006Q2

REPORT INFORMATION
  Report Type: 
  Country: None (occurrence: None)
  Receive Date: 20060614
  Receipt Date: 20060612
  Transmission Date: 20061013
  Serious: Yes (Other)
  Sender: FDA-Public Use
  Company Number: S05-FRA-05603-01

PATIENT
  Age: 39 Year
  Sex: Female

DRUGS (3)
  1. PROPESS ^FERRING^ (DINOPROSTONE) [Suspect]
     Indication: UTERINE CERVIX DILATION PROCEDURE
     Dosage: 10 MG ONCE VG
     Route: 067
     Dates: start: 20051006, end: 20051006
  2. SYNTOCINON [Concomitant]
  3. PENICILLIN G [Concomitant]

REACTIONS (3)
  - CAESAREAN SECTION [None]
  - DRUG EXPOSURE DURING PREGNANCY [None]
  - UTERINE RUPTURE [None]
